FAERS Safety Report 20120837 (Version 1)
Quarter: 2021Q4

REPORT INFORMATION
  Report Type: Report from Study
  Country: CA (occurrence: CA)
  Receive Date: 20211127
  Receipt Date: 20211127
  Transmission Date: 20220303
  Serious: Yes (Hospitalization, Other)
  Sender: FDA-Public Use
  Company Number: CA-ABBVIE-21K-028-4176612-00

PATIENT
  Age: 57 Year
  Sex: Male

DRUGS (1)
  1. HUMIRA [Suspect]
     Active Substance: ADALIMUMAB
     Indication: Crohn^s disease
     Route: 058
     Dates: start: 20160724

REACTIONS (8)
  - Obstruction [Unknown]
  - Suicidal ideation [Unknown]
  - Back pain [Unknown]
  - Nasopharyngitis [Unknown]
  - Dyspepsia [Unknown]
  - Pruritus [Unknown]
  - Eye swelling [Unknown]
  - Crohn^s disease [Unknown]

NARRATIVE: CASE EVENT DATE: 20211101
